FAERS Safety Report 25646637 (Version 2)
Quarter: 2025Q3

REPORT INFORMATION
  Report Type: Spontaneous
  Country: US (occurrence: US)
  Receive Date: 20250805
  Receipt Date: 20250816
  Transmission Date: 20251020
  Serious: Yes (Disabling, Other)
  Sender: SERVIER
  Company Number: US-SERVIER-S25011218

PATIENT

DRUGS (8)
  1. VORANIGO [Suspect]
     Active Substance: VORASIDENIB
     Indication: Astrocytoma, low grade
     Dosage: 40 MG, QD
     Route: 048
     Dates: start: 20250615
  2. VORANIGO [Suspect]
     Active Substance: VORASIDENIB
     Dosage: 40 MG, QD
     Route: 048
     Dates: start: 20250715
  3. ASPIRIN [Concomitant]
     Active Substance: ASPIRIN
     Indication: Infertility
     Route: 048
     Dates: start: 20250106
  4. PRASTERONE [Concomitant]
     Active Substance: PRASTERONE
     Indication: Infertility
     Route: 065
     Dates: start: 20250106
  5. HYDROXYCHLOROQUINE [Concomitant]
     Active Substance: HYDROXYCHLOROQUINE
     Indication: Infertility
     Route: 048
     Dates: start: 20250225
  6. METFORMIN [Concomitant]
     Active Substance: METFORMIN HYDROCHLORIDE
     Indication: Infertility
     Route: 048
     Dates: start: 20250106
  7. KEPPRA [Concomitant]
     Active Substance: LEVETIRACETAM
     Indication: Seizure
     Route: 048
     Dates: start: 2014
  8. ZOFRAN [Concomitant]
     Active Substance: ONDANSETRON HYDROCHLORIDE
     Indication: Nausea
     Route: 048
     Dates: start: 20250615

REACTIONS (1)
  - Deafness unilateral [Not Recovered/Not Resolved]

NARRATIVE: CASE EVENT DATE: 20250727
